FAERS Safety Report 10464308 (Version 3)
Quarter: 2014Q4

REPORT INFORMATION
  Report Type: Report from Study
  Country: US (occurrence: US)
  Receive Date: 20140919
  Receipt Date: 20141229
  Transmission Date: 20150528
  Serious: Yes (Hospitalization)
  Sender: FDA-Public Use
  Company Number: US-SANOFI-AVENTIS-2013SA035160

PATIENT
  Age: 52 Year
  Sex: Female

DRUGS (8)
  1. AUBAGIO [Suspect]
     Active Substance: TERIFLUNOMIDE
     Indication: MULTIPLE SCLEROSIS
     Route: 048
     Dates: start: 20130306, end: 20130320
  2. MODAFINIL. [Concomitant]
     Active Substance: MODAFINIL
     Dosage: STRENGTH: 200 MG
  3. TIZANIDINE (TIZANIDINE) [Concomitant]
     Active Substance: TIZANIDINE
     Dosage: STRENGTH: 4 MG
  4. AUBAGIO [Suspect]
     Active Substance: TERIFLUNOMIDE
     Indication: MULTIPLE SCLEROSIS
     Route: 048
     Dates: start: 20130621, end: 20141130
  5. CLONAZEPAM. [Concomitant]
     Active Substance: CLONAZEPAM
     Dosage: STRENGTH: 1 MG
  6. FLUOXETINE [Concomitant]
     Active Substance: FLUOXETINE\FLUOXETINE HYDROCHLORIDE
     Dosage: STRENGTH: 20 MG
  7. AUBAGIO [Suspect]
     Active Substance: TERIFLUNOMIDE
     Indication: MULTIPLE SCLEROSIS
     Route: 048
     Dates: start: 20130405
  8. NADOLOL. [Concomitant]
     Active Substance: NADOLOL
     Dosage: STRENGTH: 20 MG

REACTIONS (8)
  - Dysphagia [Not Recovered/Not Resolved]
  - Micturition urgency [Unknown]
  - Contusion [Recovered/Resolved]
  - Fall [Unknown]
  - Bladder operation [Unknown]
  - Back pain [Unknown]
  - Pollakiuria [Unknown]
  - Drug ineffective [Unknown]

NARRATIVE: CASE EVENT DATE: 20130321
